FAERS Safety Report 7555719-0 (Version None)
Quarter: 2011Q2

REPORT INFORMATION
  Report Type: 
  Country: None (occurrence: None)
  Receive Date: 20110617
  Receipt Date: 20110610
  Transmission Date: 20111010
  Serious: Yes (Death, Hospitalization, Other)
  Sender: FDA-Public Use
  Company Number: US-MERCK-1106USA01258

PATIENT
  Age: 63 Year
  Sex: Female
  Weight: 56 kg

DRUGS (26)
  1. OXYGEN [Concomitant]
     Route: 065
  2. GLIPIZIDE [Concomitant]
     Indication: HYPERGLYCAEMIA
     Route: 065
  3. MS CONTIN [Concomitant]
     Route: 065
  4. MORPHINE SULFATE [Concomitant]
     Route: 065
  5. MAGNESIUM (UNSPECIFIED) [Concomitant]
     Indication: HYPOMAGNESAEMIA
     Route: 065
     Dates: start: 20110401
  6. INSULIN [Suspect]
     Indication: HYPERGLYCAEMIA
     Route: 065
     Dates: start: 20110401
  7. OMEPRAZOLE [Concomitant]
     Indication: PROPHYLAXIS
     Route: 065
  8. REVLIMID [Suspect]
     Indication: MULTIPLE MYELOMA
     Dosage: DAILY X 21 DAYS EVERY 4 WEEKS
     Route: 048
     Dates: start: 20110415, end: 20110502
  9. BLOOD CELLS, RED [Concomitant]
     Indication: ANAEMIA
     Route: 042
     Dates: start: 20110401, end: 20110401
  10. BLOOD CELLS, RED [Concomitant]
     Route: 042
     Dates: start: 20110503, end: 20110503
  11. MORPHINE SULFATE [Concomitant]
     Route: 065
  12. LANTUS [Concomitant]
     Indication: HYPERGLYCAEMIA
     Route: 065
     Dates: start: 20110429
  13. COMPAZINE [Concomitant]
     Route: 065
  14. ASPIRIN [Concomitant]
     Route: 065
  15. OXYGEN [Concomitant]
     Route: 065
  16. SODIUM CHLORIDE [Concomitant]
     Indication: DEHYDRATION
     Route: 042
     Dates: start: 20110401, end: 20110401
  17. KAYEXALATE [Concomitant]
     Route: 065
  18. GABAPENTIN [Concomitant]
     Route: 065
  19. CALCIUM CARBONATE AND CHOLECALCIFEROL [Concomitant]
     Route: 065
  20. LEVAQUIN [Concomitant]
     Indication: HYPERGLYCAEMIA
     Route: 065
  21. MEGACE [Concomitant]
     Indication: INCREASED APPETITE
     Route: 065
     Dates: start: 20110101
  22. DECADRON [Suspect]
     Route: 048
     Dates: start: 20110308
  23. DECADRON [Suspect]
     Route: 048
  24. TYLENOL-500 [Concomitant]
     Route: 065
  25. OXYGEN [Concomitant]
     Route: 065
  26. ZOSYN [Concomitant]
     Route: 065

REACTIONS (9)
  - DEHYDRATION [None]
  - BONE MARROW FAILURE [None]
  - PANCYTOPENIA [None]
  - CARDIO-RESPIRATORY ARREST [None]
  - BLOOD GLUCOSE ABNORMAL [None]
  - RENAL FAILURE ACUTE [None]
  - HYPOTENSION [None]
  - MULTIPLE MYELOMA [None]
  - STREPTOCOCCAL BACTERAEMIA [None]
